FAERS Safety Report 7235023-0 (Version None)
Quarter: 2011Q1

REPORT INFORMATION
  Report Type: 
  Country: None (occurrence: None)
  Receive Date: 20110120
  Receipt Date: 20110113
  Transmission Date: 20110831
  Serious: Yes (Other)
  Sender: FDA-Public Use
  Company Number: US-ASTRAZENECA-2008UW24335

PATIENT
  Age: 678 Month
  Sex: Female
  Weight: 77.1 kg

DRUGS (7)
  1. ZYPREXA [Concomitant]
     Dates: start: 20030703
  2. LEXAPRO [Concomitant]
     Dates: start: 20030702
  3. LISINOPRIL [Concomitant]
     Dates: start: 20040101
  4. LIPITOR [Concomitant]
     Dates: start: 20040101
  5. SEROQUEL [Suspect]
     Dosage: WEANING OFF SEROQUEL
     Route: 048
     Dates: start: 20040801
  6. SEROQUEL [Suspect]
     Indication: DEPRESSION
     Dosage: 25 TO 100 MG
     Route: 048
     Dates: start: 20030530
  7. SEROQUEL [Suspect]
     Dosage: 25 MG; 1 MORNING, 3-4 MORE FOR EVENING
     Route: 048
     Dates: start: 20030901, end: 20040901

REACTIONS (6)
  - GALLBLADDER DISORDER [None]
  - TYPE 2 DIABETES MELLITUS [None]
  - BACK PAIN [None]
  - BLOOD TRIGLYCERIDES INCREASED [None]
  - GASTRIC DISORDER [None]
  - BLOOD CHOLESTEROL INCREASED [None]
